FAERS Safety Report 7730705-6 (Version None)
Quarter: 2011Q3

REPORT INFORMATION
  Report Type: 
  Country: None (occurrence: None)
  Receive Date: 20110906
  Receipt Date: 20110829
  Transmission Date: 20111222
  Serious: Yes (Hospitalization)
  Sender: FDA-Public Use
  Company Number: US-GLAXOSMITHKLINE-A0942715A

PATIENT
  Age: 55 Year
  Sex: Female

DRUGS (12)
  1. ASCORBIC ACID [Concomitant]
  2. VALIUM [Concomitant]
  3. UNSPECIFIED MEDICATION [Concomitant]
  4. ADVAIR DISKUS 100/50 [Suspect]
     Indication: BRONCHITIS
     Dosage: 1PUFF TWICE PER DAY
     Route: 055
     Dates: end: 20101206
  5. MAXAIR [Concomitant]
  6. CELEBREX [Concomitant]
  7. ZANTAC [Concomitant]
  8. AGGRENOX [Concomitant]
  9. REQUIP [Concomitant]
  10. PRAVACHOL [Concomitant]
  11. NEXIUM [Concomitant]
  12. ASPIRIN [Concomitant]

REACTIONS (6)
  - CARDIAC OPERATION [None]
  - DYSPNOEA [None]
  - FALL [None]
  - AORTIC VALVE REPLACEMENT [None]
  - PRODUCT QUALITY ISSUE [None]
  - CONCUSSION [None]
